FAERS Safety Report 9187372 (Version 2)
Quarter: 2013Q3

REPORT INFORMATION
  Report Type: Report from Study
  Country: JP (occurrence: JP)
  Receive Date: 20130325
  Receipt Date: 20130712
  Transmission Date: 20140515
  Serious: Yes (Other)
  Sender: FDA-Public Use
  Company Number: JP-VERTEX PHARMACEUTICALS INC.-2013-004025

PATIENT
  Age: 34 Year
  Sex: Male

DRUGS (6)
  1. VX-950 (TELAPREVIR) [Suspect]
     Indication: CHRONIC HEPATITIS C
     Dosage: 2250 MG, QD
     Route: 048
     Dates: start: 20120621, end: 20120912
  2. REBETOL [Suspect]
     Indication: CHRONIC HEPATITIS C
     Dosage: 800 MG, QD
     Route: 048
     Dates: start: 20120621, end: 20120830
  3. REBETOL [Suspect]
     Dosage: 600 MG, QD
     Route: 048
     Dates: start: 20120831, end: 20121205
  4. PEGINTERFERON ALFA-2B [Suspect]
     Indication: CHRONIC HEPATITIS C
     Dosage: 1.5 ?G/KG, QW
     Route: 058
     Dates: start: 20120621, end: 20121129
  5. URSO [Concomitant]
     Dosage: 900 MG, QD
     Route: 048
     Dates: start: 20120119
  6. LOXONIN [Concomitant]
     Dosage: 180 MG, QD
     Route: 048
     Dates: start: 20120630, end: 20120720

REACTIONS (1)
  - White blood cell count decreased [Recovered/Resolved]
